FAERS Safety Report 22698211 (Version 2)
Quarter: 2024Q1

REPORT INFORMATION
  Report Type: Spontaneous
  Country: US (occurrence: US)
  Receive Date: 20230712
  Receipt Date: 20240118
  Transmission Date: 20240410
  Serious: No
  Sender: FDA-Public Use
  Company Number: US-PFIZER INC-202300245592

PATIENT
  Age: 85 Year
  Sex: Female

DRUGS (1)
  1. PENICILLIN G PROCAINE [Suspect]
     Active Substance: PENICILLIN G PROCAINE
     Dosage: UNK

REACTIONS (2)
  - Drug hypersensitivity [Unknown]
  - Heart rate increased [Unknown]
